FAERS Safety Report 9010057 (Version 1)
Quarter: 2013Q1

REPORT INFORMATION
  Report Type: Spontaneous
  Country: US (occurrence: US)
  Receive Date: 20130110
  Receipt Date: 20130110
  Transmission Date: 20140127
  Serious: Yes (Death, Life-Threatening, Hospitalization, Other)
  Sender: FDA-Public Use
  Company Number: US-CELGENEUS-163-21880-12102813

PATIENT
  Age: 55 Year
  Sex: Male

DRUGS (7)
  1. REVLIMID [Suspect]
     Indication: PLASMA CELL MYELOMA
     Dosage: 5 MILLIGRAM
     Route: 048
     Dates: start: 20101216, end: 20121123
  2. MS CONTIN [Concomitant]
     Indication: PAIN
     Dosage: 60 MILLIGRAM
     Route: 048
  3. OXYCODONE [Concomitant]
     Indication: PAIN
     Dosage: 15 MILLIGRAM
     Route: 048
  4. ACYCLOVIR [Concomitant]
     Indication: ANTIVIRAL PROPHYLAXIS
     Dosage: 400 MILLIGRAM
     Route: 048
  5. LOVENOX [Concomitant]
     Indication: PRODUCT USED FOR UNKNOWN INDICATION
     Route: 065
  6. NEPHROLITHIASIS [Concomitant]
     Indication: RENAL FAILURE
     Dosage: 1 TABLET
     Route: 048
  7. SEVELAMER [Concomitant]
     Indication: RENAL FAILURE
     Dosage: 2400 MILLIGRAM
     Route: 048

REACTIONS (7)
  - Death [Fatal]
  - Renal failure [Not Recovered/Not Resolved]
  - Suicidal ideation [Unknown]
  - Disseminated intravascular coagulation [Unknown]
  - Hepatic failure [Unknown]
  - Plasma cell myeloma [Unknown]
  - Dehydration [Unknown]
